FAERS Safety Report 23674620 (Version 1)
Quarter: 2024Q1

REPORT INFORMATION
  Report Type: Report from Study
  Country: US (occurrence: US)
  Receive Date: 20240326
  Receipt Date: 20240326
  Transmission Date: 20240410
  Serious: Yes (Other)
  Sender: FDA-Public Use
  Company Number: US-ABBVIE-5293036

PATIENT
  Sex: Male

DRUGS (12)
  1. VENCLEXTA [Suspect]
     Active Substance: VENETOCLAX
     Indication: Chronic lymphocytic leukaemia
     Dosage: 4 TABLETS FROM DAY 1 TO 28
     Route: 048
     Dates: start: 202305, end: 202305
  2. VENCLEXTA [Suspect]
     Active Substance: VENETOCLAX
     Indication: Chronic lymphocytic leukaemia
     Dosage: FORM STRENGTH: 400 MILLIGRAM??END DATE- 2023
     Route: 048
     Dates: start: 202305
  3. VENCLEXTA [Suspect]
     Active Substance: VENETOCLAX
     Indication: Chronic lymphocytic leukaemia
     Dosage: FORM STRENGTH: 400 MILLIGRAM
     Route: 048
     Dates: start: 20230607
  4. VENCLEXTA [Suspect]
     Active Substance: VENETOCLAX
     Indication: Chronic lymphocytic leukaemia
     Route: 048
     Dates: start: 20230607
  5. VENCLEXTA [Suspect]
     Active Substance: VENETOCLAX
     Indication: Chronic lymphocytic leukaemia
     Dosage: FORM STRENGTH: 400 MILLIGRAM
     Route: 048
     Dates: start: 202305
  6. NEXIUM [Concomitant]
     Active Substance: ESOMEPRAZOLE MAGNESIUM
     Indication: Gastrooesophageal reflux disease
  7. GAZYVA [Suspect]
     Active Substance: OBINUTUZUMAB
     Indication: Product used for unknown indication
     Route: 065
  8. COMPAZINE [Concomitant]
     Active Substance: PROCHLORPERAZINE MALEATE
     Indication: Product used for unknown indication
     Route: 065
  9. ZOFRAN [Concomitant]
     Active Substance: ONDANSETRON HYDROCHLORIDE
     Indication: Product used for unknown indication
     Route: 065
  10. ATEZOLIZUMAB [Suspect]
     Active Substance: ATEZOLIZUMAB
     Indication: Product used for unknown indication
     Route: 065
  11. ALLOPURINOL [Suspect]
     Active Substance: ALLOPURINOL
     Indication: Product used for unknown indication
     Route: 048
     Dates: end: 202310
  12. ALLOPURINOL [Suspect]
     Active Substance: ALLOPURINOL
     Indication: Product used for unknown indication
     Dosage: THERAPY STOP DATE 2023
     Route: 048
     Dates: start: 202310

REACTIONS (32)
  - Aortic aneurysm [Unknown]
  - Gastrooesophageal reflux disease [Unknown]
  - Panic attack [Unknown]
  - Gastrointestinal disorder [Unknown]
  - Platelet count abnormal [Unknown]
  - Dyspnoea [Unknown]
  - Rash [Unknown]
  - Chest discomfort [Unknown]
  - Abdominal pain [Unknown]
  - Lymphocyte count abnormal [Unknown]
  - Blood pressure decreased [Unknown]
  - Anxiety [Unknown]
  - Nodule [Unknown]
  - Skin wound [Unknown]
  - Platelet count decreased [Recovering/Resolving]
  - Low lung compliance [Unknown]
  - Neutrophil count abnormal [Unknown]
  - Nausea [Unknown]
  - White blood cell count decreased [Recovering/Resolving]
  - Lymphocyte count decreased [Unknown]
  - Muscle spasms [Unknown]
  - Seborrhoea [Unknown]
  - Dental cleaning [Unknown]
  - Neutrophil count decreased [Unknown]
  - Dry skin [Unknown]
  - Dry skin [Unknown]
  - Feeling abnormal [Unknown]
  - Hiccups [Unknown]
  - Adverse food reaction [Unknown]
  - Dandruff [Unknown]
  - Nasopharyngitis [Unknown]
  - Unevaluable event [Unknown]

NARRATIVE: CASE EVENT DATE: 20230101
